FAERS Safety Report 8505463-8 (Version None)
Quarter: 2012Q2

REPORT INFORMATION
  Report Type: 
  Country: None (occurrence: None)
  Receive Date: 20120405
  Receipt Date: 20090306
  Transmission Date: 20120825
  Serious: Yes (Other)
  Sender: FDA-Public Use
  Company Number: PHEH2009US11728

PATIENT
  Sex: Female

DRUGS (1)
  1. RECLAST [Suspect]
     Dates: start: 20080401

REACTIONS (4)
  - OSTEOPOROSIS [None]
  - PAIN [None]
  - MIGRAINE [None]
  - TOOTH EXTRACTION [None]
